FAERS Safety Report 4286474-8 (Version None)
Quarter: 2004Q1

REPORT INFORMATION
  Report Type: 
  Country: None (occurrence: None)
  Receive Date: 20040205
  Receipt Date: 20040205
  Transmission Date: 20041129
  Serious: Yes (Other)
  Sender: FDA-Public Use
  Company Number: None

PATIENT
  Age: 70 Year
  Sex: Male
  Weight: 88.4514 kg

DRUGS (1)
  1. DICLOFENAC SODIUM [Suspect]
     Indication: ARTHRITIS
     Dosage: 1 - DAILEY

REACTIONS (2)
  - DEPRESSION [None]
  - FEELING ABNORMAL [None]
